FAERS Safety Report 4725189-6 (Version None)
Quarter: 2005Q3

REPORT INFORMATION
  Report Type: 
  Country: None (occurrence: None)
  Receive Date: 20050725
  Receipt Date: 20050713
  Transmission Date: 20060218
  Serious: Yes (Other)
  Sender: FDA-Public Use
  Company Number: 142504USA

PATIENT
  Age: 56 Year
  Sex: Female

DRUGS (1)
  1. COPAXONE [Suspect]
     Indication: MULTIPLE SCLEROSIS
     Dates: start: 20041201, end: 20041201

REACTIONS (3)
  - DRUG HYPERSENSITIVITY [None]
  - INJECTION SITE NECROSIS [None]
  - NOSOCOMIAL INFECTION [None]
